FAERS Safety Report 6451848 (Version 4)
Quarter: 2012Q4

REPORT INFORMATION
  Report Type: Spontaneous
  Country: NL (occurrence: None)
  Receive Date: 20071018
  Receipt Date: 20121203
  Transmission Date: 20130627
  Serious: Yes (Death)
  Sender: FDA-Public Use
  Company Number: POMP-11228

PATIENT
  Age: 61 Year
  Sex: Female

DRUGS (1)
  1. MYOZYME [Suspect]
     Indication: POMPE^S DISEASE
     Dosage: 20 MG/KG, Q2W, INTRAVENOUS
     Route: 042
     Dates: start: 20070629, end: 20070907

REACTIONS (2)
  - Aortic dissection [None]
  - Embolism [None]
